FAERS Safety Report 17304918 (Version 5)
Quarter: 2022Q1

REPORT INFORMATION
  Report Type: Spontaneous
  Country: US (occurrence: US)
  Receive Date: 20200123
  Receipt Date: 20220107
  Transmission Date: 20220423
  Serious: No
  Sender: FDA-Public Use
  Company Number: US-PFIZER INC-2020008919

PATIENT
  Age: 36 Year
  Sex: Female
  Weight: 104.3 kg

DRUGS (4)
  1. NICOTROL [Suspect]
     Active Substance: NICOTINE
     Indication: Smoking cessation therapy
     Dosage: 10 MG/ML, 3X/DAY
  2. NICOTROL [Suspect]
     Active Substance: NICOTINE
     Dosage: UNK, 4X/DAY (2 PUFFS)
     Route: 048
  3. NICOTROL [Suspect]
     Active Substance: NICOTINE
     Dosage: 4 CATRIDGES, DAILY
  4. NICOTROL [Suspect]
     Active Substance: NICOTINE
     Dosage: 10 MG, 4X/DAY(2 PUFFS, PO, QID, 6 CARTRIDGES PER DAY)
     Route: 048

REACTIONS (2)
  - Memory impairment [Recovered/Resolved]
  - Agitation [Unknown]

NARRATIVE: CASE EVENT DATE: 20190101
